FAERS Safety Report 9308340 (Version 4)
Quarter: 2014Q4

REPORT INFORMATION
  Report Type: Spontaneous
  Country: FR (occurrence: FR)
  Receive Date: 20130524
  Receipt Date: 20141210
  Transmission Date: 20150529
  Serious: Yes (Death, Life-Threatening, Hospitalization, Other)
  Sender: FDA-Public Use
  Company Number: FR-GLAXOSMITHKLINE-B0891500A

PATIENT

DRUGS (5)
  1. ARIXTRA [Interacting]
     Active Substance: FONDAPARINUX SODIUM
     Indication: ARRHYTHMIA
  2. COUMADINE [Interacting]
     Active Substance: WARFARIN SODIUM
     Indication: ATRIAL FIBRILLATION
     Dosage: 2 MG, BID
     Route: 048
     Dates: start: 20130306, end: 20130314
  3. ARIXTRA [Suspect]
     Active Substance: FONDAPARINUX SODIUM
     Indication: ATRIAL FIBRILLATION
     Dosage: 7.5 MG/ 0.6 ML
     Route: 058
     Dates: start: 20130306, end: 20130314
  4. KARDEGIC [Interacting]
     Active Substance: ASPIRIN LYSINE
     Indication: PRODUCT USED FOR UNKNOWN INDICATION
     Dosage: 7.5 MG, 1D
     Route: 048
     Dates: start: 20130306, end: 20130313
  5. AMLOR [Concomitant]
     Active Substance: AMLODIPINE BESYLATE
     Route: 048

REACTIONS (21)
  - Haemorrhage [Not Recovered/Not Resolved]
  - Anuria [Unknown]
  - Lymphoedema [Unknown]
  - Tachycardia [Unknown]
  - Haemodynamic instability [Unknown]
  - Hypovolaemic shock [Not Recovered/Not Resolved]
  - Hypotension [Unknown]
  - Pulse absent [Unknown]
  - Confusional state [Unknown]
  - Intestinal obstruction [Recovering/Resolving]
  - Renal failure [Fatal]
  - Drug interaction [Unknown]
  - Abdominal distension [Unknown]
  - Disorientation [Unknown]
  - General physical health deterioration [Fatal]
  - Pallor [Unknown]
  - Anaemia [Recovered/Resolved]
  - Muscle haemorrhage [Recovering/Resolving]
  - Off label use [Unknown]
  - Aggression [Unknown]
  - Shock haemorrhagic [Recovered/Resolved]

NARRATIVE: CASE EVENT DATE: 201303
